FAERS Safety Report 14941856 (Version 1)
Quarter: 2018Q2

REPORT INFORMATION
  Report Type: Report from Study
  Country: BR (occurrence: BR)
  Receive Date: 20180527
  Receipt Date: 20180527
  Transmission Date: 20180711
  Serious: Yes (Other)
  Sender: FDA-Public Use
  Company Number: PHHY2018BR005445

PATIENT
  Sex: Female
  Weight: 59 kg

DRUGS (6)
  1. EXELON [Suspect]
     Active Substance: RIVASTIGMINE TARTRATE
     Indication: COGNITIVE DISORDER
     Dosage: UNK UNK, QD
     Route: 048
     Dates: start: 2017, end: 2017
  2. EXELON PATCH [Suspect]
     Active Substance: RIVASTIGMINE
     Dosage: 9.5 MG (PATCH 10 CM2), QD
     Route: 062
  3. EXELON PATCH [Suspect]
     Active Substance: RIVASTIGMINE
     Indication: COGNITIVE DISORDER
     Dosage: 4.6 MG (PATCH 5CM2), QD
     Route: 062
     Dates: start: 2017
  4. EXELON PATCH [Suspect]
     Active Substance: RIVASTIGMINE
     Dosage: 9.5 MG (PATCH 10 CM2), QD
     Route: 062
     Dates: end: 201804
  5. EXELON PATCH [Suspect]
     Active Substance: RIVASTIGMINE
     Dosage: 13.3 MG (PATCH 15 CM2), QD
     Route: 062
     Dates: end: 201805
  6. MEMANTINE HYDROCHLORIDE. [Suspect]
     Active Substance: MEMANTINE HYDROCHLORIDE
     Indication: COGNITIVE DISORDER
     Dosage: UNK UNK, QD
     Route: 048
     Dates: start: 2017

REACTIONS (8)
  - Somnolence [Recovering/Resolving]
  - Nausea [Recovering/Resolving]
  - Product use in unapproved indication [Unknown]
  - Vomiting [Recovering/Resolving]
  - Speech disorder [Recovering/Resolving]
  - Decreased appetite [Recovering/Resolving]
  - Gait disturbance [Recovering/Resolving]
  - Tremor [Recovering/Resolving]

NARRATIVE: CASE EVENT DATE: 2017
